FAERS Safety Report 5964390-0 (Version None)
Quarter: 2008Q4

REPORT INFORMATION
  Report Type: 
  Country: None (occurrence: None)
  Receive Date: 20081124
  Receipt Date: 20081113
  Transmission Date: 20090506
  Serious: Yes (Hospitalization, Other)
  Sender: FDA-Public Use
  Company Number: JP-PFIZER INC-2008091482

PATIENT
  Age: 47 Year
  Sex: Female

DRUGS (2)
  1. PROVERA [Suspect]
     Route: 048
  2. ESTRADIOL [Concomitant]

REACTIONS (1)
  - HYPONATRAEMIA [None]
